FAERS Safety Report 5037403-0 (Version None)
Quarter: 2006Q2

REPORT INFORMATION
  Report Type: 
  Country: None (occurrence: None)
  Receive Date: 20060628
  Receipt Date: 20060616
  Transmission Date: 20061013
  Serious: Yes (Hospitalization, Other)
  Sender: FDA-Public Use
  Company Number: KR-BRISTOL-MYERS SQUIBB COMPANY-13415328

PATIENT
  Age: 53 Year
  Sex: Male

DRUGS (3)
  1. MEVALOTIN [Suspect]
     Indication: HYPERLIPIDAEMIA
     Route: 048
     Dates: start: 20060401, end: 20060501
  2. ZOCOR [Suspect]
     Indication: HYPERTENSION
     Route: 048
     Dates: start: 20020101, end: 20060401
  3. ASPIRIN [Concomitant]
     Route: 048
     Dates: start: 20010101, end: 20060101

REACTIONS (4)
  - BLOOD CREATINE PHOSPHOKINASE INCREASED [None]
  - DYSPEPSIA [None]
  - MYALGIA [None]
  - WEIGHT INCREASED [None]
